FAERS Safety Report 5698402-9 (Version None)
Quarter: 2008Q2

REPORT INFORMATION
  Report Type: 
  Country: None (occurrence: None)
  Receive Date: 20080408
  Receipt Date: 20080401
  Transmission Date: 20081010
  Serious: Yes (Other)
  Sender: FDA-Public Use
  Company Number: US-GILEAD-2008-0015577

PATIENT
  Sex: Female
  Weight: 86.26 kg

DRUGS (10)
  1. LETAIRIS [Suspect]
     Route: 048
     Dates: start: 20071101
  2. POTASSIUM CHLORIDE CR [Concomitant]
     Indication: HYPOKALAEMIA
     Route: 048
  3. CALCIUM [Concomitant]
     Indication: SUPPLEMENTATION THERAPY
     Route: 048
  4. OMEPRAZOLE [Concomitant]
     Indication: GASTROOESOPHAGEAL REFLUX DISEASE
     Route: 048
  5. ISOSORB MONO [Concomitant]
     Indication: CARDIAC DISORDER
     Route: 048
  6. PROZAC [Concomitant]
     Indication: DEPRESSION
     Route: 048
  7. LEVOTHYROXINE SODIUM [Concomitant]
     Indication: HYPOTHYROIDISM
     Route: 048
  8. DILTIAZEM [Concomitant]
     Indication: CARDIAC DISORDER
     Route: 048
  9. TRAMADOL HCL [Concomitant]
     Indication: PAIN
     Route: 048
  10. HYDROCHLOROTHIAZIDE [Concomitant]
     Indication: PULMONARY HYPERTENSION
     Route: 048

REACTIONS (2)
  - DYSPNOEA [None]
  - PALPITATIONS [None]
